FAERS Safety Report 4380994-3 (Version None)
Quarter: 2004Q2

REPORT INFORMATION
  Report Type: 
  Country: None (occurrence: None)
  Receive Date: 20040614
  Receipt Date: 20040604
  Transmission Date: 20050107
  Serious: Yes (Death)
  Sender: FDA-Public Use
  Company Number: FRWYE805704JUN04

PATIENT
  Age: 17 Year
  Sex: Male

DRUGS (9)
  1. TAZOCILLINE (PIPERACILLIN/TAZOBACTAM, INJECTION) [Suspect]
     Route: 042
     Dates: start: 20040428, end: 20040508
  2. AMINO ACID [Suspect]
     Dosage: 250 MG 1X PER 1 DAY;  500 MG 1X PER 1 DAY
     Route: 051
     Dates: start: 20040410, end: 20040415
  3. AMINO ACID [Suspect]
     Dosage: 250 MG 1X PER 1 DAY;  500 MG 1X PER 1 DAY
     Route: 051
     Dates: start: 20040508, end: 20040508
  4. BURINEX (BUMETANIDE,  , 0) [Suspect]
     Dates: start: 20040415, end: 20040508
  5. MABTHERA (RITUXIMAB,  , 0) [Suspect]
     Dates: start: 20040501, end: 20040508
  6. NOVOSEVEN [Suspect]
     Dates: start: 20040419, end: 20040506
  7. TARGOCID [Suspect]
     Dates: start: 20040428, end: 20040508
  8. FLUCONAZOLE [Suspect]
     Dates: start: 20040428, end: 20040508
  9. RED BLOOD CELLS [Concomitant]

REACTIONS (4)
  - COMA [None]
  - DIALYSIS [None]
  - ENCEPHALOPATHY [None]
  - HYPERAMMONAEMIA [None]
